FAERS Safety Report 13956194 (Version 4)
Quarter: 2018Q4

REPORT INFORMATION
  Report Type: Spontaneous
  Country: US (occurrence: US)
  Receive Date: 20170911
  Receipt Date: 20181113
  Transmission Date: 20190204
  Serious: Yes (Hospitalization, Other)
  Sender: FDA-Public Use
  Company Number: US-DSJP-DSU-2017-136416

PATIENT

DRUGS (2)
  1. BENICAR [Suspect]
     Active Substance: OLMESARTAN MEDOXOMIL
     Indication: HYPERTENSION
     Dosage: 20 MG TWO TABLET, QD
     Route: 048
     Dates: start: 20050808, end: 20150716
  2. BENICAR [Suspect]
     Active Substance: OLMESARTAN MEDOXOMIL
     Dosage: 40 MG, QD
     Route: 048
     Dates: start: 20050808, end: 20150716

REACTIONS (9)
  - Oesophageal ulcer [Unknown]
  - Acute kidney injury [Recovering/Resolving]
  - Diverticulum intestinal [Not Recovered/Not Resolved]
  - Helicobacter gastritis [Recovering/Resolving]
  - Hiatus hernia [Recovered/Resolved]
  - Syncope [Recovering/Resolving]
  - Diarrhoea [Not Recovered/Not Resolved]
  - Weight decreased [Unknown]
  - Constipation [Not Recovered/Not Resolved]

NARRATIVE: CASE EVENT DATE: 20081120
